FAERS Safety Report 9937388 (Version 2)
Quarter: 2014Q2

REPORT INFORMATION
  Report Type: Report from Study
  Country: US (occurrence: US)
  Receive Date: 20140303
  Receipt Date: 20140429
  Transmission Date: 20141212
  Serious: Yes (Hospitalization, Other)
  Sender: FDA-Public Use
  Company Number: US-ROCHE-1356375

PATIENT
  Age: 51 Year
  Sex: Female
  Weight: 88.45 kg

DRUGS (13)
  1. RIBAVIRIN [Suspect]
     Indication: HEPATITIS C
     Route: 048
     Dates: start: 20131015, end: 20140123
  2. SOFOSBUVIR [Suspect]
     Indication: HEPATITIS C
     Route: 048
     Dates: start: 20131015, end: 20140123
  3. TENOFOVIR [Concomitant]
     Route: 065
     Dates: start: 20131022, end: 20140106
  4. CICLOSPORIN [Concomitant]
     Route: 065
     Dates: start: 20131004
  5. BUMETANIDE [Concomitant]
     Route: 065
     Dates: start: 20131115, end: 20140106
  6. ENTECAVIR [Concomitant]
     Route: 065
     Dates: start: 20140107
  7. MAGNESIUM OXIDE [Concomitant]
     Route: 065
     Dates: start: 20131230
  8. OXYCODONE [Concomitant]
     Route: 065
     Dates: start: 20131222
  9. MIRALAX [Concomitant]
     Route: 065
     Dates: start: 20131225
  10. SENNA [Concomitant]
     Route: 065
     Dates: start: 20131202
  11. OMEPRAZOLE [Concomitant]
  12. DOXYCYCLINE [Concomitant]
     Route: 065
     Dates: start: 20131222, end: 20140101
  13. VALGANCICLOVIR [Concomitant]
     Route: 065
     Dates: start: 20131021, end: 20140111

REACTIONS (1)
  - Cardiomyopathy [Not Recovered/Not Resolved]
